FAERS Safety Report 9689544 (Version 3)
Quarter: 2013Q4

REPORT INFORMATION
  Report Type: Report from Study
  Country: CH (occurrence: CH)
  Receive Date: 20131115
  Receipt Date: 20131206
  Transmission Date: 20140711
  Serious: Yes (Hospitalization)
  Sender: FDA-Public Use
  Company Number: CH-ROCHE-1303622

PATIENT
  Age: 40 Year
  Sex: Female

DRUGS (3)
  1. ERLOTINIB [Suspect]
     Indication: LUNG NEOPLASM MALIGNANT
     Dosage: LAST DOSE PRIOR TO SAE RECEIVED ON:11/NOV/2013?LAST DOSE PRIOR AN EPISODE ON:18/NOV/2013
     Route: 048
     Dates: start: 20120430
  2. BEVACIZUMAB [Suspect]
     Indication: LUNG NEOPLASM MALIGNANT
     Dosage: LAST DOSE PRIOR TO SAE RECEIVED ON:28/OCT/2013
     Route: 042
     Dates: start: 20120430
  3. KEPPRA [Concomitant]
     Route: 048

REACTIONS (1)
  - Convulsion [Recovered/Resolved]
